FAERS Safety Report 9416976 (Version 1)
Quarter: 2013Q3

REPORT INFORMATION
  Report Type: Spontaneous
  Country: US (occurrence: None)
  Receive Date: 20130722
  Receipt Date: 20130722
  Transmission Date: 20140515
  Serious: Yes (Hospitalization)
  Sender: FDA-Public Use
  Company Number: ACO_37347_2013

PATIENT
  Age: 69 Year
  Sex: Female

DRUGS (2)
  1. AMPYRA [Suspect]
     Indication: PRODUCT USED FOR UNKNOWN INDICATION
     Dates: start: 20130313
  2. AVONEX (INTERFERON BETA-1A) [Concomitant]

REACTIONS (1)
  - Escherichia infection [None]
